FAERS Safety Report 6036877-6 (Version None)
Quarter: 2009Q1

REPORT INFORMATION
  Report Type: 
  Country: None (occurrence: None)
  Receive Date: 20090114
  Receipt Date: 20090106
  Transmission Date: 20090719
  Serious: Yes (Death, Hospitalization, Other)
  Sender: FDA-Public Use
  Company Number: CR-WYE-H07608209

PATIENT
  Age: 58 Year
  Sex: Male

DRUGS (3)
  1. PANTECTA [Suspect]
     Dosage: DOSE AND FREQUENCY UNSPECIFIED
     Route: 048
  2. INSULIN [Concomitant]
     Indication: DIABETES MELLITUS
     Dosage: UNKNOWN
  3. ENALAPRIL MALEATE [Concomitant]
     Indication: HYPERTENSION
     Dosage: UNKNOWN

REACTIONS (4)
  - COLON CANCER [None]
  - GASTROINTESTINAL HAEMORRHAGE [None]
  - HAEMORRHAGE [None]
  - ULCER [None]
